FAERS Safety Report 20816569 (Version 1)
Quarter: 2022Q2

REPORT INFORMATION
  Report Type: Spontaneous
  Country: PL (occurrence: PL)
  Receive Date: 20220512
  Receipt Date: 20220512
  Transmission Date: 20220721
  Serious: No
  Sender: FDA-Public Use
  Company Number: PL-TOLMAR, INC.-22PL033084

PATIENT
  Sex: Male

DRUGS (2)
  1. ELIGARD [Suspect]
     Active Substance: LEUPROLIDE ACETATE
     Indication: Prostate cancer recurrent
     Dosage: 45 MILLIGRAM
     Dates: start: 2015
  2. FLUTAMIDE [Suspect]
     Active Substance: FLUTAMIDE
     Indication: Prostate cancer recurrent
     Dosage: FOR 2-3 MONTHS

REACTIONS (1)
  - Prostatic specific antigen increased [Unknown]

NARRATIVE: CASE EVENT DATE: 20190801
